FAERS Safety Report 7409586-6 (Version None)
Quarter: 2011Q2

REPORT INFORMATION
  Report Type: 
  Country: None (occurrence: None)
  Receive Date: 20110412
  Receipt Date: 20110401
  Transmission Date: 20111010
  Serious: Yes (Other)
  Sender: FDA-Public Use
  Company Number: PHHY2010BR74437

PATIENT
  Sex: Female
  Weight: 73 kg

DRUGS (1)
  1. DIOVAN HCT [Suspect]
     Indication: HYPERTENSION
     Dosage: 160/12.5 MG (ONE TABLET DAILY)
     Route: 048

REACTIONS (1)
  - VOCAL CORD THICKENING [None]
